FAERS Safety Report 4821215-4 (Version None)
Quarter: 2005Q4

REPORT INFORMATION
  Report Type: 
  Country: None (occurrence: None)
  Receive Date: 20051107
  Receipt Date: 20050930
  Transmission Date: 20060501
  Serious: Yes (Death)
  Sender: FDA-Public Use
  Company Number: US-JNJFOC-20051100782

PATIENT

DRUGS (2)
  1. ABCIXIMAB [Suspect]
     Indication: DRUG USE FOR UNKNOWN INDICATION
  2. RETEPLASE [Suspect]
     Indication: DRUG USE FOR UNKNOWN INDICATION

REACTIONS (1)
  - HAEMORRHAGE INTRACRANIAL [None]
